FAERS Safety Report 6057586-3 (Version None)
Quarter: 2009Q1

REPORT INFORMATION
  Report Type: 
  Country: None (occurrence: None)
  Receive Date: 20090129
  Receipt Date: 20090120
  Transmission Date: 20090719
  Serious: Yes (Other)
  Sender: FDA-Public Use
  Company Number: ES-ALLERGAN-0900673US

PATIENT
  Sex: Male

DRUGS (1)
  1. BRIMONIDINE UNK [Suspect]
     Indication: DRUG USE FOR UNKNOWN INDICATION
     Route: 047

REACTIONS (4)
  - BRADYCARDIA [None]
  - HYPERTENSION [None]
  - HYPOVENTILATION [None]
  - INTRACRANIAL PRESSURE INCREASED [None]
